FAERS Safety Report 12947763 (Version 9)
Quarter: 2017Q3

REPORT INFORMATION
  Report Type: Report from Study
  Country: US (occurrence: US)
  Receive Date: 20161117
  Receipt Date: 20170719
  Transmission Date: 20171127
  Serious: Yes (Other)
  Sender: FDA-Public Use
  Company Number: US-009507513-1611USA003080

PATIENT
  Age: 55 Year
  Sex: Male

DRUGS (1)
  1. PEMBROLIZUMAB. [Suspect]
     Active Substance: PEMBROLIZUMAB
     Indication: MALIGNANT MELANOMA
     Dosage: UNK, EVERY 3 WEEKS
     Route: 042
     Dates: start: 20161103

REACTIONS (18)
  - Rheumatoid arthritis [Unknown]
  - Blood mercury abnormal [Unknown]
  - Muscle disorder [Unknown]
  - Lymphadenopathy [Unknown]
  - Chemical poisoning [Unknown]
  - Mixed connective tissue disease [Unknown]
  - Muscle tightness [Recovered/Resolved]
  - Food allergy [Not Recovered/Not Resolved]
  - Connective tissue disorder [Unknown]
  - Pain [Unknown]
  - Inflammation [Unknown]
  - Blood aluminium increased [Unknown]
  - Musculoskeletal pain [Unknown]
  - Neurotoxicity [Unknown]
  - Food poisoning [Unknown]
  - Tendon pain [Recovering/Resolving]
  - Tendon disorder [Recovered/Resolved]
  - Weight decreased [Not Recovered/Not Resolved]

NARRATIVE: CASE EVENT DATE: 2016
